FAERS Safety Report 16583450 (Version 1)
Quarter: 2019Q3

REPORT INFORMATION
  Report Type: Spontaneous
  Country: US (occurrence: US)
  Receive Date: 20190717
  Receipt Date: 20190717
  Transmission Date: 20191004
  Serious: No
  Sender: FDA-Public Use
  Company Number: US-SHIRE-US201922995

PATIENT
  Age: 36 Year
  Sex: Male

DRUGS (1)
  1. VYVANSE [Suspect]
     Active Substance: LISDEXAMFETAMINE DIMESYLATE
     Indication: ATTENTION DEFICIT/HYPERACTIVITY DISORDER
     Dosage: 60 MILLIGRAM (20 MG OF VYVANSE 3 TIMES A DAY)
     Route: 065

REACTIONS (4)
  - Fall [Unknown]
  - Off label use [Unknown]
  - Paranoia [Unknown]
  - Anger [Unknown]
